FAERS Safety Report 7315110-9 (Version None)
Quarter: 2011Q1

REPORT INFORMATION
  Report Type: 
  Country: None (occurrence: None)
  Receive Date: 20110225
  Receipt Date: 20110215
  Transmission Date: 20110831
  Serious: Yes (Other)
  Sender: FDA-Public Use
  Company Number: JP-SANOFI-AVENTIS-2011SA008635

PATIENT
  Age: 62 Year
  Sex: Female
  Weight: 65 kg

DRUGS (8)
  1. ELPLAT [Suspect]
     Indication: COLON CANCER
     Route: 041
     Dates: start: 20110125, end: 20110125
  2. LACTEC [Concomitant]
     Route: 041
     Dates: start: 20110127, end: 20110127
  3. GRANISETRON HYDROCHLORIDE [Concomitant]
     Indication: PREMEDICATION
     Route: 041
     Dates: start: 20110125, end: 20110125
  4. POLARAMINE [Concomitant]
     Indication: PREMEDICATION
     Route: 041
     Dates: start: 20110125, end: 20110125
  5. LOXONIN [Concomitant]
     Route: 048
     Dates: start: 20110127, end: 20110127
  6. DEXAMETHASONE SODIUM PHOSPHATE [Concomitant]
     Indication: PREMEDICATION
     Route: 041
     Dates: start: 20110125, end: 20110125
  7. SOLU-CORTEF [Concomitant]
     Dosage: 300MG-200MG-500MG
     Route: 041
     Dates: start: 20110125, end: 20110127
  8. AVASTIN [Suspect]
     Indication: COLON CANCER
     Route: 041
     Dates: start: 20110125, end: 20110125

REACTIONS (4)
  - HYPOCALCAEMIA [None]
  - HYPOMAGNESAEMIA [None]
  - NEUROPATHY PERIPHERAL [None]
  - ANAPHYLACTIC REACTION [None]
